FAERS Safety Report 20692991 (Version 2)
Quarter: 2022Q3

REPORT INFORMATION
  Report Type: Report from Study
  Country: AU (occurrence: AU)
  Receive Date: 20220410
  Receipt Date: 20220704
  Transmission Date: 20221027
  Serious: Yes (Other)
  Sender: FDA-Public Use
  Company Number: AU-NOVARTISPH-NVSC2021AU287139

PATIENT
  Sex: Male

DRUGS (2)
  1. COSENTYX [Suspect]
     Active Substance: SECUKINUMAB
     Indication: Ankylosing spondylitis
     Dosage: UNK , QMO
     Route: 058
  2. COSENTYX [Suspect]
     Active Substance: SECUKINUMAB
     Dosage: UNK, QMO
     Route: 058
     Dates: start: 20211011

REACTIONS (6)
  - Neuropathy peripheral [Unknown]
  - Hypoaesthesia [Unknown]
  - Tinea pedis [Unknown]
  - Foot fracture [Not Recovered/Not Resolved]
  - Discomfort [Unknown]
  - Off label use [Unknown]
